FAERS Safety Report 20830805 (Version 1)
Quarter: 2022Q2

REPORT INFORMATION
  Report Type: Spontaneous
  Country: FR (occurrence: FR)
  Receive Date: 20220515
  Receipt Date: 20220515
  Transmission Date: 20220721
  Serious: Yes (Other)
  Sender: FDA-Public Use
  Company Number: None

PATIENT
  Age: 61 Year
  Sex: Female
  Weight: 62 kg

DRUGS (5)
  1. CLARITHROMYCIN [Suspect]
     Active Substance: CLARITHROMYCIN
     Indication: Mycobacterium avium complex infection
     Dosage: UNIT DOSE : 500 MG, FREQUENCY TIME : 12 HOURS
     Route: 048
     Dates: start: 20200525
  2. FLUOXETINE HYDROCHLORIDE [Suspect]
     Active Substance: FLUOXETINE HYDROCHLORIDE
     Indication: Depression
     Dosage: UNIT DOSE : 20 MG, FREQUENCY TIME : 1 DAYS
     Route: 048
     Dates: start: 20210416
  3. FLUOXETINE HYDROCHLORIDE [Suspect]
     Active Substance: FLUOXETINE HYDROCHLORIDE
     Dosage: UNIT DOSE : 10 MG, FREQUENCY TIME : 1 DAYS, THERAPY DURATION : 8 DAYS
     Route: 048
     Dates: start: 20210409, end: 20210416
  4. LAMPRENE [Suspect]
     Active Substance: CLOFAZIMINE
     Indication: Mycobacterium avium complex infection
     Dosage: UNIT DOSE AND UNIT STRENGTH : 100 MG, FREQUENCY TIME : 1 DAYS
     Route: 048
     Dates: start: 20210413
  5. ETHAMBUTOL HYDROCHLORIDE [Suspect]
     Active Substance: ETHAMBUTOL HYDROCHLORIDE
     Indication: Mycobacterium avium complex infection
     Dosage: UNIT STRENGTH: 500 MG , UNIT DOSE : 1000 MG , FREQUENCY TIME : 1 DAYS
     Route: 048
     Dates: start: 20200525

REACTIONS (1)
  - Visual acuity reduced [Not Recovered/Not Resolved]

NARRATIVE: CASE EVENT DATE: 20210429
